FAERS Safety Report 10017804 (Version 2)
Quarter: 2014Q2

REPORT INFORMATION
  Report Type: Report from Study
  Country: US (occurrence: US)
  Receive Date: 20140318
  Receipt Date: 20140417
  Transmission Date: 20141212
  Serious: No
  Sender: FDA-Public Use
  Company Number: US-ALEXION-A201400813

PATIENT
  Sex: 0

DRUGS (6)
  1. SOLIRIS [Suspect]
     Indication: HAEMOLYTIC URAEMIC SYNDROME
     Dosage: 1200 MG, Q2W
     Route: 042
     Dates: start: 20131206
  2. LABETALOL [Concomitant]
     Indication: PROPHYLAXIS
     Dosage: UNK
     Route: 065
     Dates: start: 20131125
  3. NORVASC [Concomitant]
     Indication: PROPHYLAXIS
     Dosage: UNK
     Dates: start: 20131125
  4. WELLBUTRIN [Concomitant]
     Indication: PRODUCT USED FOR UNKNOWN INDICATION
     Dosage: UNK
     Dates: start: 20131201
  5. RITUXAN [Concomitant]
     Indication: PRODUCT USED FOR UNKNOWN INDICATION
     Dosage: UNK
     Dates: start: 20131205, end: 20131226
  6. SUPER B COMPLEX                    /01995301/ [Concomitant]
     Indication: PRODUCT USED FOR UNKNOWN INDICATION
     Dosage: UNK
     Dates: start: 20131220

REACTIONS (3)
  - Hair texture abnormal [Not Recovered/Not Resolved]
  - Alopecia [Not Recovered/Not Resolved]
  - Nausea [Not Recovered/Not Resolved]
